FAERS Safety Report 7493570-0 (Version None)
Quarter: 2011Q2

REPORT INFORMATION
  Report Type: 
  Country: None (occurrence: None)
  Receive Date: 20110519
  Receipt Date: 20110519
  Transmission Date: 20111010
  Serious: No
  Sender: FDA-Public Use
  Company Number: None

PATIENT
  Sex: Female
  Weight: 80.7 kg

DRUGS (1)
  1. CISPLATIN [Suspect]
     Dosage: 178MG

REACTIONS (1)
  - DEEP VEIN THROMBOSIS [None]
